FAERS Safety Report 4675669-7 (Version None)
Quarter: 2005Q2

REPORT INFORMATION
  Report Type: 
  Country: None (occurrence: None)
  Receive Date: 20050527
  Receipt Date: 20050519
  Transmission Date: 20051028
  Serious: Yes (Hospitalization, Other)
  Sender: FDA-Public Use
  Company Number: US-ABBOTT-05P-163-0300887-00

PATIENT
  Sex: Female

DRUGS (1)
  1. OMNICEF [Suspect]
     Indication: ARTHRITIS BACTERIAL
     Route: 048
     Dates: start: 20050401, end: 20050501

REACTIONS (2)
  - FALL [None]
  - PANCYTOPENIA [None]
